FAERS Safety Report 7149469-2 (Version None)
Quarter: 2010Q4

REPORT INFORMATION
  Report Type: 
  Country: None (occurrence: None)
  Receive Date: 20101209
  Receipt Date: 20101122
  Transmission Date: 20110411
  Serious: No
  Sender: FDA-Public Use
  Company Number: US-PFIZER INC-2010156768

PATIENT
  Sex: Female

DRUGS (2)
  1. ADVIL PM [Suspect]
     Indication: BACK PAIN
     Dosage: 2 CAPSULES, 1X/DAY
     Route: 048
     Dates: start: 20101122, end: 20101122
  2. LEVOTHYROXINE [Concomitant]

REACTIONS (1)
  - NAUSEA [None]
